FAERS Safety Report 6826521-X (Version None)
Quarter: 2010Q3

REPORT INFORMATION
  Report Type: 
  Country: None (occurrence: None)
  Receive Date: 20100709
  Receipt Date: 20100628
  Transmission Date: 20110219
  Serious: Yes (Hospitalization, Other)
  Sender: FDA-Public Use
  Company Number: PHHO2005CA07391

PATIENT
  Sex: Female

DRUGS (14)
  1. SANDOSTATIN LAR [Suspect]
     Indication: ACROMEGALY
     Dosage: 30 MG, EVERY 4 WEEKS
     Route: 030
     Dates: start: 20021120
  2. TRAZODONE [Concomitant]
     Indication: DEPRESSION
     Dosage: 50 MG, TID
     Route: 048
  3. METFORMIN HCL [Concomitant]
     Indication: DIABETES MELLITUS
     Dosage: 500 MG, TID
     Route: 048
  4. ALTACE [Concomitant]
     Dosage: 5 MG, QD
     Route: 048
  5. ALTACE [Concomitant]
     Dosage: UNK
     Dates: start: 20050201
  6. SIMVASTATIN [Concomitant]
     Indication: BLOOD CHOLESTEROL
     Dosage: 20 MG, QD
     Route: 048
  7. PREMARIN [Concomitant]
     Dosage: 0.625 MG, QD
     Route: 048
  8. SYNTHROID [Concomitant]
     Dosage: 0.115 MG, QD
     Route: 048
  9. APO-ATENOL [Concomitant]
     Indication: BLOOD PRESSURE
     Dosage: 100 MG, QD
     Route: 048
  10. APO-FUROSEMIDE [Concomitant]
     Dosage: 20 MG, QD
     Route: 048
  11. TYLENOL [Concomitant]
     Indication: OSTEITIS DEFORMANS
     Dosage: 3 QD PRN
     Route: 048
  12. TYLENOL [Concomitant]
     Indication: OSTEOPOROSIS
  13. ROBAXACET [Concomitant]
     Dosage: PRN
  14. XANAX [Concomitant]
     Dosage: 0.5 MG, QD
     Route: 048

REACTIONS (7)
  - BLOOD PRESSURE INCREASED [None]
  - BREAST MASS [None]
  - BREAST PAIN [None]
  - HEADACHE [None]
  - HYPERGLYCAEMIA [None]
  - PAIN [None]
  - PNEUMONIA [None]
